FAERS Safety Report 14858283 (Version 1)
Quarter: 2018Q2

REPORT INFORMATION
  Report Type: Spontaneous
  Country: CH (occurrence: CH)
  Receive Date: 20180508
  Receipt Date: 20180508
  Transmission Date: 20180711
  Serious: Yes (Hospitalization)
  Sender: FDA-Public Use
  Company Number: CH-009507513-1805CHE000447

PATIENT
  Age: 39 Year
  Sex: Female

DRUGS (11)
  1. TIENAM [Suspect]
     Active Substance: CILASTATIN SODIUM\IMIPENEM
     Indication: SEPSIS
     Dosage: 500 MG, Q8H
     Route: 042
     Dates: start: 20180318, end: 20180329
  2. SOLUVIT [Concomitant]
     Active Substance: VITAMINS
     Indication: NUTRITIONAL SUPPLEMENTATION
     Dosage: 1 DF, QD
     Route: 042
  3. TEMESTA (LORAZEPAM) [Concomitant]
     Active Substance: LORAZEPAM
     Indication: PRODUCT USED FOR UNKNOWN INDICATION
     Dosage: 1 MG, UNK
     Route: 048
  4. LYO VANCIN [Concomitant]
     Indication: SEPSIS
     Dosage: 1 G, Q12H
     Route: 042
     Dates: start: 20180222, end: 20180301
  5. BENERVA [Concomitant]
     Active Substance: THIAMINE
     Indication: NUTRITIONAL SUPPLEMENTATION
     Dosage: 300 MG, QD
     Route: 042
  6. MERONEM [Concomitant]
     Active Substance: MEROPENEM
     Indication: SEPSIS
     Dosage: 1 G, Q8H
     Route: 042
     Dates: start: 20180302, end: 20180318
  7. SMOFKABIVEN [Concomitant]
     Active Substance: AMINO ACIDS\DEXTROSE\ELECTROLYTES NOS\SOYBEAN OIL
     Indication: NUTRITIONAL SUPPLEMENTATION
     Dosage: 1970 ML, QD
     Route: 042
  8. FENTANYL. [Concomitant]
     Active Substance: FENTANYL
     Indication: PAIN
     Dosage: 1 MICROGRAM, UNK
     Route: 042
  9. FOLIC ACID. [Concomitant]
     Active Substance: FOLIC ACID
     Indication: NUTRITIONAL SUPPLEMENTATION
     Dosage: 25 MG, TIW
     Route: 042
  10. ADDAVEN [Concomitant]
     Active Substance: ELECTROLYTES NOS\MINERALS
     Indication: NUTRITIONAL SUPPLEMENTATION
     Dosage: 10 ML, QD
     Route: 042
  11. VITALIPID N [Concomitant]
     Active Substance: ERGOCALCIFEROL\PHYTONADIONE\TOCOPHEROL\VITAMIN A PALMITATE
     Indication: NUTRITIONAL SUPPLEMENTATION
     Dosage: 10 ML, QD
     Route: 042

REACTIONS (1)
  - Systemic candida [Recovered/Resolved]

NARRATIVE: CASE EVENT DATE: 20180328
